FAERS Safety Report 7628559 (Version 2)
Quarter: 2012Q4

REPORT INFORMATION
  Report Type: 
  Country: US (occurrence: US)
  Receive Date: 20101013
  Receipt Date: 20121108
  Transmission Date: 20130627
  Serious: No
  Sender: FDA-Public Use
  Company Number: US-PFIZER INC-2010128048

PATIENT
  Age: 53 Year
  Sex: Female
  Weight: 61.22 kg

DRUGS (2)
  1. XALATAN [Suspect]
     Indication: INTRAOCULAR PRESSURE INCREASED
     Dosage: 1 Gtt in left eye
     Route: 047
     Dates: start: 201009
  2. XALATAN [Suspect]
     Indication: OPEN-ANGLE GLAUCOMA

REACTIONS (4)
  - Vision blurred [Not Recovered/Not Resolved]
  - Visual acuity reduced [Not Recovered/Not Resolved]
  - Eyelid oedema [Unknown]
  - Eye irritation [Unknown]
